FAERS Safety Report 6769246-1 (Version None)
Quarter: 2010Q2

REPORT INFORMATION
  Report Type: 
  Country: None (occurrence: None)
  Receive Date: 20100615
  Receipt Date: 20100604
  Transmission Date: 20101027
  Serious: No
  Sender: FDA-Public Use
  Company Number: US-JNJFOC-20100602230

PATIENT
  Sex: Female
  Weight: 58.51 kg

DRUGS (6)
  1. FENTANYL [Suspect]
     Indication: MULTIPLE MYELOMA
     Dates: start: 20100501
  2. FENTANYL-100 [Suspect]
     Indication: MULTIPLE MYELOMA
     Route: 062
  3. FENTANYL-100 [Suspect]
     Route: 062
  4. TRAMADOL HCL [Concomitant]
     Indication: BREAKTHROUGH PAIN
     Route: 048
  5. VITAMIN B-12 [Concomitant]
     Indication: NUTRITIONAL SUPPORT
     Route: 030
  6. DEXAMETHASONE [Concomitant]
     Route: 048

REACTIONS (2)
  - APPLICATION SITE RASH [None]
  - WRONG TECHNIQUE IN DRUG USAGE PROCESS [None]
